FAERS Safety Report 23724549 (Version 1)
Quarter: 2024Q2

REPORT INFORMATION
  Report Type: Spontaneous
  Country: US (occurrence: US)
  Receive Date: 20240409
  Receipt Date: 20240409
  Transmission Date: 20240715
  Serious: No
  Sender: FDA-Public Use
  Company Number: US-FOUNDATIONCONSUMERHC-2023-US-032967

PATIENT
  Age: 29 Year
  Sex: Female
  Weight: 64.41 kg

DRUGS (3)
  1. PLAN B ONE-STEP [Suspect]
     Active Substance: LEVONORGESTREL
     Indication: Post coital contraception
     Dosage: APPROXIMATELY 4 TO 5 DOSES
     Route: 065
     Dates: start: 202304, end: 202309
  2. VITAMIN D3 [Concomitant]
     Active Substance: CHOLECALCIFEROL
  3. IRON [Concomitant]
     Active Substance: IRON

REACTIONS (5)
  - Galactorrhoea [Recovered/Resolved]
  - Breast tenderness [Recovered/Resolved]
  - Pain in extremity [Recovered/Resolved]
  - Intentional product misuse [Not Recovered/Not Resolved]
  - Product use in unapproved indication [Not Recovered/Not Resolved]

NARRATIVE: CASE EVENT DATE: 20230401
